FAERS Safety Report 24121226 (Version 1)
Quarter: 2024Q3

REPORT INFORMATION
  Report Type: Spontaneous
  Country: US (occurrence: None)
  Receive Date: 20240722
  Receipt Date: 20240722
  Transmission Date: 20241016
  Serious: Yes (Hospitalization)
  Sender: Public
  Company Number: None

PATIENT
  Age: 81 Year
  Sex: Male

DRUGS (1)
  1. LENALIDOMIDE [Suspect]
     Active Substance: LENALIDOMIDE
     Indication: Monoclonal gammopathy
     Dosage: OTHER QUANTITY : 1 CAPSULE;?OTHER FREQUENCY : DAILY/21 DAYS ON/7 DAYS OFF;?
     Route: 048
     Dates: start: 202407

REACTIONS (3)
  - Blood pressure increased [None]
  - Hyperhidrosis [None]
  - Chest pain [None]

NARRATIVE: CASE EVENT DATE: 20240715
